FAERS Safety Report 10286759 (Version 1)
Quarter: 2014Q3

REPORT INFORMATION
  Report Type: Spontaneous
  Country: US (occurrence: US)
  Receive Date: 20140709
  Receipt Date: 20140709
  Transmission Date: 20150326
  Serious: Yes (Hospitalization)
  Sender: FDA-Public Use
  Company Number: US-ACTELION-A-NJ2014-101372

PATIENT
  Age: 74 Year
  Sex: Female

DRUGS (1)
  1. OPSUMIT [Suspect]
     Active Substance: MACITENTAN
     Indication: PULMONARY VENO-OCCLUSIVE DISEASE
     Dosage: 10 MG, UNK
     Route: 048
     Dates: start: 201405, end: 201406

REACTIONS (1)
  - Pulmonary congestion [Recovered/Resolved]

NARRATIVE: CASE EVENT DATE: 201406
